FAERS Safety Report 9406842 (Version 2)
Quarter: 2013Q3

REPORT INFORMATION
  Report Type: Report from Study
  Country: CA (occurrence: CA)
  Receive Date: 20130718
  Receipt Date: 20130808
  Transmission Date: 20140515
  Serious: Yes (Death)
  Sender: FDA-Public Use
  Company Number: PHHY2013CA076220

PATIENT
  Age: 73 Year
  Sex: Female

DRUGS (11)
  1. ACLASTA [Suspect]
     Indication: OSTEOPOROSIS
     Dosage: 5 MG, UNK
     Route: 042
     Dates: start: 20121012
  2. MIRAPEX [Concomitant]
     Dosage: UNK UKN, UNK
  3. TYLENOL [Concomitant]
     Dosage: UNK
  4. VENTOLIN                           /00942701/ [Concomitant]
     Dosage: UNK
  5. SENNA [Concomitant]
     Dosage: UNK
  6. LACTULOSE [Concomitant]
     Dosage: UNK
  7. CALCIUM CARBONATE [Concomitant]
     Dosage: UNK
  8. VIT D [Concomitant]
     Dosage: UNK
  9. DONEPEZIL [Concomitant]
     Dosage: UNK
  10. SINEMET [Concomitant]
     Dosage: UNK
  11. CIPRALEX                                /DEN/ [Concomitant]
     Dosage: UNK

REACTIONS (2)
  - Parkinson^s disease [Fatal]
  - Respiratory failure [Fatal]
